FAERS Safety Report 11068981 (Version 1)
Quarter: 2015Q2

REPORT INFORMATION
  Report Type: Spontaneous
  Country: US (occurrence: US)
  Receive Date: 20150427
  Receipt Date: 20150427
  Transmission Date: 20150821
  Serious: No
  Sender: FDA-Public Use
  Company Number: US-BIOGENIDEC-2015BI054421

PATIENT
  Sex: Female

DRUGS (1)
  1. TECFIDERA [Suspect]
     Active Substance: DIMETHYL FUMARATE
     Indication: MULTIPLE SCLEROSIS
     Dates: start: 20130923

REACTIONS (6)
  - Coordination abnormal [Unknown]
  - Holmes tremor [Unknown]
  - Peroneal nerve palsy [Unknown]
  - Blindness unilateral [Unknown]
  - Dysarthria [Unknown]
  - Gait disturbance [Unknown]
